FAERS Safety Report 7348894-4 (Version None)
Quarter: 2011Q1

REPORT INFORMATION
  Report Type: 
  Country: None (occurrence: None)
  Receive Date: 20110314
  Receipt Date: 20110304
  Transmission Date: 20110831
  Serious: Yes (Hospitalization)
  Sender: FDA-Public Use
  Company Number: US-SANOFI-AVENTIS-2011SA013973

PATIENT
  Age: 51 Year
  Sex: Female

DRUGS (1)
  1. LOVENOX [Suspect]
     Indication: DEEP VEIN THROMBOSIS
     Route: 058
     Dates: start: 20090101

REACTIONS (8)
  - HEADACHE [None]
  - DYSPNOEA [None]
  - GASTRITIS [None]
  - NAUSEA [None]
  - DIARRHOEA [None]
  - HAEMORRHOIDS [None]
  - HIATUS HERNIA [None]
  - VOMITING [None]
